FAERS Safety Report 10038305 (Version 1)
Quarter: 2014Q1

REPORT INFORMATION
  Report Type: Spontaneous
  Country: US (occurrence: US)
  Receive Date: 20140326
  Receipt Date: 20140326
  Transmission Date: 20141002
  Serious: Yes (Other)
  Sender: FDA-Public Use
  Company Number: US-SA-2014SA034589

PATIENT
  Age: 53 Year
  Sex: Male

DRUGS (1)
  1. LANTUS SOLOSTAR [Suspect]
     Indication: DIABETES MELLITUS
     Dosage: DOSE: 30UNITS IN THE MORNING AND 20 UNITS IN THE EVENING
     Route: 065

REACTIONS (1)
  - Cardiac failure congestive [Unknown]
